FAERS Safety Report 15319387 (Version 1)
Quarter: 2018Q3

REPORT INFORMATION
  Report Type: Spontaneous
  Country: US (occurrence: US)
  Receive Date: 20180827
  Receipt Date: 20180827
  Transmission Date: 20181010
  Serious: No
  Sender: FDA-Public Use
  Company Number: US-JNJFOC-20180816326

PATIENT
  Sex: Male

DRUGS (1)
  1. YONDELIS [Suspect]
     Active Substance: TRABECTEDIN
     Indication: SARCOMA
     Route: 065
     Dates: start: 2018

REACTIONS (2)
  - Catheter site pain [Not Recovered/Not Resolved]
  - Catheter site erythema [Not Recovered/Not Resolved]

NARRATIVE: CASE EVENT DATE: 201808
